FAERS Safety Report 8645998 (Version 7)
Quarter: 2013Q4

REPORT INFORMATION
  Report Type: Spontaneous
  Country: US (occurrence: US)
  Receive Date: 20120702
  Receipt Date: 20131126
  Transmission Date: 20140711
  Serious: Yes (Hospitalization, Disabling, Other)
  Sender: FDA-Public Use
  Company Number: US-009507513-1206USA04857

PATIENT
  Sex: Female
  Weight: 42.81 kg

DRUGS (8)
  1. FOSAMAX [Suspect]
     Indication: OSTEOPOROSIS PROPHYLAXIS
     Dosage: 70 MG, QW
     Route: 048
     Dates: start: 200307, end: 200507
  2. FOSAMAX [Suspect]
     Dosage: 70 MG, QW
     Route: 048
     Dates: start: 20090826, end: 20100508
  3. FOSAMAX PLUS D [Suspect]
     Indication: OSTEOPOROSIS PROPHYLAXIS
     Dosage: 70 MG, QW
     Route: 048
     Dates: start: 20050706, end: 200806
  4. CALCIUM (UNSPECIFIED) [Concomitant]
     Dosage: UNK
     Dates: start: 2001
  5. ASCORBIC ACID [Concomitant]
     Dosage: UNK
  6. PREMARIN [Concomitant]
     Indication: HORMONE REPLACEMENT THERAPY
     Dosage: UNK
     Dates: start: 2001, end: 2012
  7. LIPITOR [Concomitant]
     Indication: BLOOD CHOLESTEROL INCREASED
  8. PRAVASTATIN SODIUM [Concomitant]
     Indication: BLOOD CHOLESTEROL INCREASED
     Dosage: UNK
     Dates: start: 2001, end: 2010

REACTIONS (25)
  - Femur fracture [Recovering/Resolving]
  - Open reduction of fracture [Recovering/Resolving]
  - Stress fracture [Not Recovered/Not Resolved]
  - Femur fracture [Not Recovered/Not Resolved]
  - Transfusion [Recovered/Resolved]
  - Anaemia postoperative [Recovered/Resolved]
  - Low turnover osteopathy [Not Recovered/Not Resolved]
  - Osteoporosis [Not Recovered/Not Resolved]
  - Femur fracture [Unknown]
  - Abscess [Unknown]
  - Hypertension [Unknown]
  - Hypercholesterolaemia [Unknown]
  - Atrophic vulvovaginitis [Unknown]
  - Haemorrhoids [Unknown]
  - Cystocele [Unknown]
  - Rectocele [Unknown]
  - Osteoporosis [Unknown]
  - Arthritis [Unknown]
  - Hot flush [Unknown]
  - Constipation [Unknown]
  - Gastrooesophageal reflux disease [Unknown]
  - Headache [Unknown]
  - Drug hypersensitivity [Unknown]
  - Abdominal distension [Unknown]
  - Dyspepsia [Unknown]
